FAERS Safety Report 13845535 (Version 1)
Quarter: 2017Q3

REPORT INFORMATION
  Report Type: Spontaneous
  Country: US (occurrence: US)
  Receive Date: 20170808
  Receipt Date: 20170808
  Transmission Date: 20171127
  Serious: No
  Sender: FDA-Public Use
  Company Number: US-ROCHE-795463

PATIENT
  Age: 79 Year
  Sex: Female
  Weight: 56.2 kg

DRUGS (6)
  1. PREVACID [Concomitant]
     Active Substance: LANSOPRAZOLE
     Route: 065
  2. CALCIUM [Concomitant]
     Active Substance: CALCIUM
     Dosage: REPORTED AS: CALCIUM WITH VITAMIN D
     Route: 065
  3. VITAMIN C [Concomitant]
     Active Substance: ASCORBIC ACID
     Dosage: REPORTED AS: CALCIUM WITH VITAMIN D
     Route: 065
  4. BONIVA [Suspect]
     Active Substance: IBANDRONATE SODIUM
     Indication: OSTEOPOROSIS
     Route: 048
     Dates: start: 20071007, end: 200911
  5. BONIVA [Suspect]
     Active Substance: IBANDRONATE SODIUM
     Route: 048
  6. VITAMIN D [Concomitant]
     Active Substance: CHOLECALCIFEROL
     Dosage: REPORTED AS: CALCIUM WITH VITAMIN D
     Route: 065

REACTIONS (3)
  - Flatulence [Unknown]
  - Abdominal distension [Unknown]
  - Product quality issue [Unknown]

NARRATIVE: CASE EVENT DATE: 20110803
